FAERS Safety Report 23065816 (Version 4)
Quarter: 2024Q1

REPORT INFORMATION
  Report Type: Spontaneous
  Country: US (occurrence: None)
  Receive Date: 20231014
  Receipt Date: 20240216
  Transmission Date: 20240409
  Serious: Yes (Hospitalization)
  Sender: FDA-Public Use
  Company Number: US-ROCHE-3437858

PATIENT
  Age: 44 Year
  Sex: Female

DRUGS (4)
  1. XOLAIR [Suspect]
     Active Substance: OMALIZUMAB
     Indication: Idiopathic urticaria
     Dosage: ONGOING: YES, EVERY 2 WEEKS
     Route: 058
     Dates: start: 202308
  2. XOLAIR [Suspect]
     Active Substance: OMALIZUMAB
     Indication: Essential hypertension
  3. HAEGARDA [Concomitant]
     Active Substance: HUMAN C1-ESTERASE INHIBITOR
  4. FIRAZYR [Concomitant]
     Active Substance: ICATIBANT ACETATE

REACTIONS (6)
  - Hereditary angioedema [Unknown]
  - Off label use [Unknown]
  - Off label use [Unknown]
  - Abdominal distension [Unknown]
  - Swelling face [Unknown]
  - Swelling [Unknown]

NARRATIVE: CASE EVENT DATE: 20240103
